FAERS Safety Report 8289917 (Version 2)
Quarter: 2012Q4

REPORT INFORMATION
  Report Type: Spontaneous
  Country: US (occurrence: None)
  Receive Date: 20111122
  Receipt Date: 20120426
  Transmission Date: 20130627
  Serious: No
  Sender: FDA-Public Use
  Company Number: PHHY2011US61565

PATIENT
  Age: 57 Year
  Sex: Female

DRUGS (6)
  1. GILENYA [Suspect]
     Indication: MULTIPLE SCLEROSIS
     Dosage: 0.5 MG, QD, ORAL
     Route: 048
     Dates: start: 20110215, end: 20110802
  2. FIORICET (BUTALBITAL, CAFFEINE, PARACETAMOL) TABLET [Concomitant]
  3. LORAZEPAM [Concomitant]
  4. NEXIUM [Concomitant]
  5. PERCOCET [Concomitant]
  6. OXYBUTYNIN [Concomitant]

REACTIONS (5)
  - Hypoacusis [None]
  - Balance disorder [None]
  - Aspiration [None]
  - Dysphagia [None]
  - White blood cell count increased [None]
